FAERS Safety Report 21203189 (Version 1)
Quarter: 2022Q3

REPORT INFORMATION
  Report Type: Spontaneous
  Country: US (occurrence: US)
  Receive Date: 20220811
  Receipt Date: 20220811
  Transmission Date: 20221027
  Serious: No
  Sender: FDA-Public Use
  Company Number: US-OTSUKA-2021_024509

PATIENT
  Sex: Female

DRUGS (1)
  1. REXULTI [Suspect]
     Active Substance: BREXPIPRAZOLE
     Indication: Bipolar II disorder
     Dosage: 2 MG
     Route: 065

REACTIONS (4)
  - Depression [Unknown]
  - Product dose omission issue [Unknown]
  - Inability to afford medication [Unknown]
  - Product use in unapproved indication [Unknown]
